FAERS Safety Report 9974624 (Version 1)
Quarter: 2014Q1

REPORT INFORMATION
  Report Type: Report from Study
  Country: US (occurrence: US)
  Receive Date: 20140306
  Receipt Date: 20140306
  Transmission Date: 20141002
  Serious: No
  Sender: FDA-Public Use
  Company Number: US-ABBVIE-13P-163-1157350-00

PATIENT
  Age: 57 Year
  Sex: Female
  Weight: 90.8 kg

DRUGS (11)
  1. HUMIRA [Suspect]
     Indication: RHEUMATOID ARTHRITIS
     Dates: start: 201301, end: 201306
  2. LITHIUM [Concomitant]
     Indication: BIPOLAR DISORDER
  3. GEODON [Concomitant]
     Indication: BIPOLAR DISORDER
  4. COGENTIN [Concomitant]
     Indication: TREMOR
  5. PRISTIQ [Concomitant]
     Indication: DEPRESSION
  6. RESTORIL [Concomitant]
     Indication: INSOMNIA
  7. LAMICTAL [Concomitant]
     Indication: BIPOLAR DISORDER
  8. LISINOPRIL [Concomitant]
     Indication: HYPERTENSION
  9. FOLIC ACID [Concomitant]
     Indication: PRODUCT USED FOR UNKNOWN INDICATION
  10. HYDROCODONE [Concomitant]
     Indication: PAIN
  11. CLONAZEPAM [Concomitant]
     Indication: ANXIETY

REACTIONS (1)
  - Rheumatoid arthritis [Not Recovered/Not Resolved]
